FAERS Safety Report 8403602-0 (Version None)
Quarter: 2012Q2

REPORT INFORMATION
  Report Type: 
  Country: None (occurrence: None)
  Receive Date: 20120601
  Receipt Date: 20120525
  Transmission Date: 20120825
  Serious: Yes (Hospitalization, Other)
  Sender: FDA-Public Use
  Company Number: IE-ABBOTT-12P-229-0909357-00

PATIENT
  Sex: Female
  Weight: 55 kg

DRUGS (2)
  1. HUMIRA [Suspect]
     Indication: COLITIS ULCERATIVE
     Dosage: EVERY TWO WEEKS FOR SIX WEEKS
     Dates: start: 20110401, end: 20110501
  2. HUMIRA [Suspect]
     Indication: CROHN'S DISEASE
     Dosage: INDUCTION DOSE
     Route: 058
     Dates: start: 20110401, end: 20110401

REACTIONS (30)
  - MALAISE [None]
  - PAIN [None]
  - RED BLOOD CELL SEDIMENTATION RATE INCREASED [None]
  - GENITAL ERYTHEMA [None]
  - COLITIS [None]
  - DIARRHOEA [None]
  - INSOMNIA [None]
  - HYPERSENSITIVITY [None]
  - DEPRESSION [None]
  - GENITAL RASH [None]
  - NEPHROLITHIASIS [None]
  - NO THERAPEUTIC RESPONSE [None]
  - WEIGHT DECREASED [None]
  - BLOOD ALKALINE PHOSPHATASE INCREASED [None]
  - PROCEDURAL PAIN [None]
  - HEADACHE [None]
  - FEELING HOT [None]
  - COUGH [None]
  - ARTHRALGIA [None]
  - QUALITY OF LIFE DECREASED [None]
  - MUSCLE SPASMS [None]
  - RESTLESS LEGS SYNDROME [None]
  - FLUID INTAKE REDUCED [None]
  - BACK PAIN [None]
  - PLATELET COUNT INCREASED [None]
  - GENITAL PAIN [None]
  - HALLUCINATION [None]
  - ARTHRITIS [None]
  - ANAEMIA [None]
  - SPINAL OSTEOARTHRITIS [None]
